FAERS Safety Report 10784393 (Version 1)
Quarter: 2015Q1

REPORT INFORMATION
  Report Type: Spontaneous
  Country: EE (occurrence: EE)
  Receive Date: 20150211
  Receipt Date: 20150211
  Transmission Date: 20150721
  Serious: Yes (Hospitalization)
  Sender: FDA-Public Use
  Company Number: EE-ACCORD-028458

PATIENT
  Age: 66 Year
  Sex: Male

DRUGS (2)
  1. DOCETAXEL ACCORD [Suspect]
     Active Substance: DOCETAXEL
     Indication: PROSTATE CANCER METASTATIC
     Route: 042
     Dates: start: 20141217, end: 20141217
  2. ZOLEDRONIC ACID TEVA [Concomitant]
     Indication: METASTASES TO BONE
     Route: 042
     Dates: start: 20141217, end: 20141217

REACTIONS (2)
  - Rectal haemorrhage [Recovered/Resolved]
  - Pseudomembranous colitis [Recovered/Resolved]

NARRATIVE: CASE EVENT DATE: 20141220
